FAERS Safety Report 20067937 (Version 2)
Quarter: 2021Q4

REPORT INFORMATION
  Report Type: Other
  Country: GB (occurrence: GB)
  Receive Date: 20211115
  Receipt Date: 20211122
  Transmission Date: 20220303
  Serious: Yes (Death, Life-Threatening, Hospitalization, Other)
  Sender: FDA-Public Use
  Company Number: None

PATIENT
  Age: 62 Year
  Sex: Female
  Weight: 67.6 kg

DRUGS (44)
  1. CARBOPLATIN [Suspect]
     Active Substance: CARBOPLATIN
     Indication: Small cell lung cancer extensive stage
     Dosage: 450 MILLIGRAM, UNK
     Route: 065
     Dates: start: 20210316
  2. HYDROCORTISONE [Suspect]
     Active Substance: HYDROCORTISONE
     Indication: Product used for unknown indication
     Dosage: UNK
     Route: 065
  3. HYDROCORTISONE [Suspect]
     Active Substance: HYDROCORTISONE
     Dosage: UNK
     Route: 042
     Dates: start: 20210416
  4. HYDROCORTISONE [Suspect]
     Active Substance: HYDROCORTISONE
     Dosage: UNK
     Route: 065
     Dates: start: 20210505, end: 20210509
  5. HYDROCORTISONE [Suspect]
     Active Substance: HYDROCORTISONE
     Dosage: UNK
     Route: 065
     Dates: start: 202106
  6. ATEZOLIZUMAB [Suspect]
     Active Substance: ATEZOLIZUMAB
     Indication: Small cell lung cancer extensive stage
     Dosage: 1200 MILLIGRAM, EVERY 3 WEEKS (INTRAVENOUS-DRIP)
     Route: 042
     Dates: start: 20210316
  7. ATEZOLIZUMAB [Suspect]
     Active Substance: ATEZOLIZUMAB
     Dosage: 1200 MILLIGRAM, EVERY 3 WEEKS (INTRAVENOUS DRIP)
     Route: 041
     Dates: start: 20210316
  8. ATEZOLIZUMAB [Suspect]
     Active Substance: ATEZOLIZUMAB
     Dosage: 1200 MILLIGRAM, EVERY TWO WEEK
     Route: 065
     Dates: start: 20210406
  9. ATEZOLIZUMAB [Suspect]
     Active Substance: ATEZOLIZUMAB
     Dosage: 1200 MILLIGRAM, EVERY TWO WEEK
     Route: 065
     Dates: start: 20210427
  10. ETOPOSIDE [Suspect]
     Active Substance: ETOPOSIDE
     Indication: Small cell lung cancer extensive stage
     Dosage: 180 MILLIGRAM, PRN (ONE AS NECESSARY)
     Route: 065
     Dates: start: 20210316
  11. ETOPOSIDE [Suspect]
     Active Substance: ETOPOSIDE
     Dosage: UNK UNK, PRN (AS REQUIRED)
     Route: 065
     Dates: start: 20210317
  12. ETOPOSIDE [Suspect]
     Active Substance: ETOPOSIDE
     Dosage: 700 MILLIGRAM, UNK
     Route: 048
     Dates: start: 20210407
  13. ACYCLOVIR [Concomitant]
     Active Substance: ACYCLOVIR
     Indication: Product used for unknown indication
     Dosage: UNK
     Route: 065
     Dates: start: 202108
  14. BISOPROLOL [Concomitant]
     Active Substance: BISOPROLOL
     Indication: Product used for unknown indication
     Dosage: 1 DOSAGE FORM, QD
     Route: 065
  15. CHLORPHENIRAMINE MALEATE [Concomitant]
     Active Substance: CHLORPHENIRAMINE MALEATE
     Indication: Product used for unknown indication
     Dosage: 10 MILLIGRAM, UNK
     Route: 065
     Dates: start: 20210406, end: 20210406
  16. CHLORPHENIRAMINE MALEATE [Concomitant]
     Active Substance: CHLORPHENIRAMINE MALEATE
     Dosage: 10 MILLIGRAM, UNK
     Route: 065
     Dates: start: 20210416
  17. CIPROFLOXACIN [Concomitant]
     Active Substance: CIPROFLOXACIN
     Indication: Product used for unknown indication
     Dosage: UNK
     Route: 065
     Dates: start: 20210419
  18. CLOTRIMAZOLE [Concomitant]
     Active Substance: CLOTRIMAZOLE
     Indication: Product used for unknown indication
     Dosage: UNK, PRN (AS NECESSARY)
     Route: 065
     Dates: start: 20210824
  19. AMOXICILLIN\CLAVULANATE POTASSIUM [Concomitant]
     Active Substance: AMOXICILLIN\CLAVULANATE POTASSIUM
     Indication: Product used for unknown indication
     Dosage: 3 DOSAGE FORM, PER DAY
     Route: 065
     Dates: start: 20210419, end: 20210422
  20. DEXAMETHASONE [Concomitant]
     Active Substance: DEXAMETHASONE
     Indication: Product used for unknown indication
     Dosage: 8 MILLIGRAM, PER DAY
     Route: 065
     Dates: start: 20210222, end: 20210222
  21. DEXAMETHASONE [Concomitant]
     Active Substance: DEXAMETHASONE
     Dosage: 8 MILLIGRAM, UNK
     Route: 065
     Dates: start: 20210316, end: 20210316
  22. DEXAMETHASONE [Concomitant]
     Active Substance: DEXAMETHASONE
     Dosage: 8 MILLIGRAM, PER DAY
     Route: 065
     Dates: start: 20210406, end: 20210406
  23. DIGOXIN [Concomitant]
     Active Substance: DIGOXIN
     Indication: Product used for unknown indication
     Dosage: 1 DOSAGE FORM, QD
     Route: 065
  24. DOCUSATE SODIUM [Concomitant]
     Active Substance: DOCUSATE SODIUM
     Indication: Product used for unknown indication
     Dosage: UNK
     Route: 065
     Dates: start: 20210825
  25. FILGRASTIM [Concomitant]
     Active Substance: FILGRASTIM
     Indication: Product used for unknown indication
     Dosage: UNK
     Route: 065
     Dates: start: 20210418
  26. FLUDROCORTISONE [Concomitant]
     Active Substance: FLUDROCORTISONE
     Indication: Product used for unknown indication
     Dosage: UNK
     Route: 065
     Dates: start: 20210509
  27. GLICLAZIDE [Concomitant]
     Active Substance: GLICLAZIDE
     Indication: Product used for unknown indication
     Dosage: UNK
     Route: 065
     Dates: start: 20210510
  28. POLYETHYLENE GLYCOL 3350\POTASSIUM CHLORIDE\SODIUM BICARBONATE\SODIUM [Concomitant]
     Active Substance: POLYETHYLENE GLYCOL 3350\POTASSIUM CHLORIDE\SODIUM BICARBONATE\SODIUM CHLORIDE
     Indication: Product used for unknown indication
     Dosage: 1 DOSAGE FORM, PRN (ONE AS NECESSARY)
     Route: 065
  29. METFORMIN [Concomitant]
     Active Substance: METFORMIN HYDROCHLORIDE
     Indication: Product used for unknown indication
     Dosage: 1 DOSAGE FORM, QD
     Route: 065
     Dates: start: 20210217
  30. NOVORAPID [Concomitant]
     Active Substance: INSULIN ASPART
     Indication: Product used for unknown indication
     Dosage: UNK
     Route: 065
     Dates: start: 20210508, end: 20210510
  31. OMEPRAZOLE [Concomitant]
     Active Substance: OMEPRAZOLE
     Indication: Product used for unknown indication
     Dosage: UNK
     Route: 065
     Dates: start: 202108
  32. ONDANSETRON [Concomitant]
     Active Substance: ONDANSETRON
     Indication: Product used for unknown indication
     Dosage: 8 MILLIGRAM, UNK
     Route: 065
     Dates: start: 20210222, end: 20210222
  33. ONDANSETRON [Concomitant]
     Active Substance: ONDANSETRON
     Dosage: 8 MILLIGRAM, UNK
     Route: 065
     Dates: start: 20210316, end: 20210316
  34. ONDANSETRON [Concomitant]
     Active Substance: ONDANSETRON
     Dosage: 8 MILLIGRAM, UNK
     Route: 065
     Dates: start: 20210406, end: 20210406
  35. ACETAMINOPHEN [Concomitant]
     Active Substance: ACETAMINOPHEN
     Indication: Product used for unknown indication
     Dosage: 1 GRAM, UNK
     Route: 065
     Dates: start: 20210406, end: 20210406
  36. ACETAMINOPHEN [Concomitant]
     Active Substance: ACETAMINOPHEN
     Dosage: UNK
     Route: 065
     Dates: start: 202106
  37. PREDNISOLONE [Concomitant]
     Active Substance: PREDNISOLONE
     Indication: Product used for unknown indication
     Dosage: UNK
     Route: 065
     Dates: start: 20210822
  38. RAMIPRIL [Concomitant]
     Active Substance: RAMIPRIL
     Indication: Product used for unknown indication
     Dosage: 1 DOSAGE FORM, QD
     Route: 065
     Dates: start: 20210512
  39. ALBUTEROL SULFATE [Concomitant]
     Active Substance: ALBUTEROL SULFATE
     Indication: Product used for unknown indication
     Dosage: 1 DOSAGE FORM, PRN (ONE AS NECESSARY)
     Route: 065
  40. VITAMIN D3 [Concomitant]
     Active Substance: CHOLECALCIFEROL
     Indication: Product used for unknown indication
     Dosage: 1 DOSAGE FORM, QD
     Route: 065
  41. APIXABAN [Concomitant]
     Active Substance: APIXABAN
     Indication: Product used for unknown indication
     Dosage: UNK
     Route: 065
  42. SODIUM CHLORIDE [Concomitant]
     Active Substance: SODIUM CHLORIDE
     Indication: Product used for unknown indication
     Dosage: 500 MILLILITER, UNK
     Route: 065
     Dates: start: 20210416
  43. PARAFFIN [Concomitant]
     Active Substance: PARAFFIN
     Indication: Product used for unknown indication
     Dosage: 1 DOSAGE FORM, PRN (ONE AS NECESSARY)
     Route: 065
     Dates: start: 202106
  44. VITAMIN B COMPOUND [CALCIUM PANTOTHENATE;CYANOCOBALAMIN;NICOTINAMIDE;P [Concomitant]
     Indication: Product used for unknown indication
     Dosage: UNK
     Route: 065

REACTIONS (18)
  - Small cell lung cancer [Fatal]
  - Neoplasm progression [Fatal]
  - Orthostatic hypotension [Fatal]
  - Hyperglycaemia [Fatal]
  - Mucosal inflammation [Fatal]
  - Hypoglycaemia [Fatal]
  - Dizziness [Fatal]
  - Cortisol decreased [Fatal]
  - Blood glucose increased [Fatal]
  - Adrenal disorder [Fatal]
  - Back pain [Fatal]
  - Abdominal pain upper [Fatal]
  - Anaemia [Fatal]
  - Neutrophil count decreased [Fatal]
  - Pyrexia [Fatal]
  - Pancytopenia [Fatal]
  - Platelet count decreased [Fatal]
  - Off label use [Unknown]
